APPROVED DRUG PRODUCT: ROPIVACAINE HYDROCHLORIDE
Active Ingredient: ROPIVACAINE HYDROCHLORIDE
Strength: 150MG/30ML (5MG/ML)
Dosage Form/Route: SOLUTION;INJECTION
Application: A212808 | Product #003 | TE Code: AP
Applicant: CAPLIN STERILES LTD
Approved: Apr 9, 2020 | RLD: No | RS: No | Type: RX